FAERS Safety Report 8142485-3 (Version None)
Quarter: 2012Q1

REPORT INFORMATION
  Report Type: 
  Country: None (occurrence: None)
  Receive Date: 20120216
  Receipt Date: 20120215
  Transmission Date: 20120608
  Serious: Yes (Hospitalization, Other)
  Sender: FDA-Public Use
  Company Number: CA-AMGEN-QUU336979

PATIENT
  Age: 59 Year
  Sex: Male
  Weight: 103 kg

DRUGS (54)
  1. HYDROXYCHLOROQUINE                 /00072603/ [Concomitant]
     Indication: ARTHRITIS
     Dosage: 400 MG, QD
  2. POTASSIUM CHLORIDE [Concomitant]
     Indication: MINERAL SUPPLEMENTATION
     Dosage: 1200 MG, BID
  3. DALTEPARIN SODIUM [Concomitant]
     Dosage: 5000 IU, QD
     Route: 058
  4. LACTULOSE [Concomitant]
     Dosage: 30 ML, PRN
  5. MS CONTIN [Concomitant]
     Dosage: 30 MG, TID
  6. GINKGO BILOBA [Concomitant]
     Dosage: 60 MG, QD
  7. GLUCOSAMINE + CHONDROITIN          /01430901/ [Concomitant]
     Dosage: 900 MG, QD
  8. ACETAMINOPHEN [Concomitant]
     Indication: PAIN
     Dosage: 650 MG, Q6H
  9. SENNA                              /00142201/ [Concomitant]
     Indication: CONSTIPATION
     Dosage: 17.2 MG, BID
  10. PERCOCET [Concomitant]
     Dosage: UNK UNK, Q6H
  11. TEMAZEPAM [Concomitant]
     Indication: INSOMNIA
     Dosage: 30 MG, PRN
     Dates: start: 20010614
  12. PLAQUENIL [Concomitant]
     Dosage: 400 MG, QD
  13. ALDACTONE [Concomitant]
     Dosage: 12.5 MG, QD
     Route: 048
  14. BACLOFEN [Concomitant]
     Dosage: 10 MG, QD
     Dates: start: 20070911
  15. MULTI-VITAMINS [Concomitant]
     Dosage: UNK UNK, QD
  16. VITAMIN E                          /00110501/ [Concomitant]
     Dosage: UNK
  17. CORTISONE ACETATE [Concomitant]
     Dosage: UNK
  18. DECADRON [Concomitant]
  19. NIFEDIPINE [Concomitant]
     Indication: BLOOD PRESSURE
     Dosage: 60 MG, QD
     Dates: start: 20080401, end: 20080501
  20. ATIVAN [Concomitant]
     Dosage: 1 MG, PRN
  21. GRAVOL TAB [Concomitant]
     Dosage: UNK
  22. CALCIUM MAGNESIUM [Concomitant]
     Dosage: UNK UNK, QD
  23. PREDNISONE TAB [Concomitant]
     Dosage: 50 MG, UNK
  24. DOCUSATE SODIUM [Concomitant]
     Indication: FAECES HARD
     Dosage: 100 MG, BID
  25. ALTACE HCT [Concomitant]
     Indication: BLOOD PRESSURE
     Dosage: UNK
     Route: 048
     Dates: start: 20070827
  26. BISACODYL [Concomitant]
     Dosage: UNK UNK, PRN
  27. LYRICA [Concomitant]
     Indication: PAIN
     Dosage: 150 MG, BID
     Dates: start: 20080401, end: 20080501
  28. RAMIPRIL [Concomitant]
     Dosage: 10 MG, QD
  29. ACETAMINOPHEN AND OXYCODONE HCL [Concomitant]
     Dosage: UNK UNK, BID
     Dates: start: 20091022
  30. OXYCODONE HCL [Concomitant]
     Indication: PAIN
  31. GABAPENTIN [Concomitant]
     Indication: NEURALGIA
     Dosage: 300 MG, TID
  32. HYDROXYCHLOROQUINE                 /00072603/ [Concomitant]
     Dosage: 200 MG, QD
  33. CLONAZEPAM [Concomitant]
     Dosage: UNK
  34. ETODOLAC [Concomitant]
     Dosage: 30 MG, Q8H
  35. ANTIHYPERTENSIVES [Concomitant]
     Dosage: UNK
  36. GINSENG                            /01384001/ [Concomitant]
     Dosage: 650 MG, QD
  37. COD LIVER OIL [Concomitant]
     Dosage: UNK UNK, QD
  38. DILAUDID [Concomitant]
     Indication: PAIN
     Dosage: 2 MG, PRN
     Dates: start: 20090401
  39. ENBREL [Suspect]
     Dosage: 50 MG, QWK
     Dates: start: 20060621, end: 20061016
  40. ZOPICLONE [Concomitant]
     Dosage: 7.5 MG, PRN
  41. QUININE SULFATE [Concomitant]
     Dosage: 300 MG, QD
     Route: 048
     Dates: start: 20080401
  42. METOPROLOL TARTRATE [Concomitant]
     Indication: HEART RATE IRREGULAR
     Dosage: 25 MG, BID
     Dates: start: 20080401
  43. BACLOFEN [Concomitant]
     Dosage: 40 MG, QD
  44. GARLIC                             /01570501/ [Concomitant]
     Dosage: 100 MG, QD
  45. LAXATIVES [Concomitant]
  46. INDAPAMIDE [Concomitant]
     Indication: BLOOD PRESSURE
     Dosage: 2.5 MG, QD
  47. RANITIDINE [Concomitant]
     Indication: GASTRIC PH
     Dosage: 150 MG, BID
     Route: 048
     Dates: start: 20080401
  48. ATALAK [Concomitant]
     Dosage: 60 MG, QD
  49. ASPIRIN [Concomitant]
     Dosage: 81 MG, QD
     Route: 048
  50. LIPITOR [Concomitant]
     Indication: HYPERLIPIDAEMIA
     Dosage: 20 MG, QD
     Route: 048
     Dates: start: 20080401
  51. TOPILENE [Concomitant]
     Dosage: UNK UNK, PRN
  52. SODIUM CHLORIDE [Concomitant]
     Dosage: UNK
     Route: 042
  53. THIAZIDE [Concomitant]
     Dosage: UNK
     Dates: end: 20080307
  54. PREDNISONE TAB [Concomitant]
     Indication: RHEUMATOID ARTHRITIS
     Dosage: 10 MG, QD

REACTIONS (55)
  - PULMONARY OEDEMA [None]
  - NEPHROLITHIASIS [None]
  - OEDEMA [None]
  - HEARING IMPAIRED [None]
  - PROCEDURAL VOMITING [None]
  - PROCEDURAL NAUSEA [None]
  - FALL [None]
  - MENTAL DISORDER [None]
  - NEURALGIA [None]
  - JOINT INJURY [None]
  - NEUROGENIC BLADDER [None]
  - DEPRESSED MOOD [None]
  - RESTLESS LEGS SYNDROME [None]
  - PSORIASIS [None]
  - CELLULITIS [None]
  - URETERIC OBSTRUCTION [None]
  - ROTATOR CUFF SYNDROME [None]
  - IMPAIRED WORK ABILITY [None]
  - FRACTURE [None]
  - MULTIPLE SCLEROSIS [None]
  - DEMYELINATION [None]
  - SLEEP APNOEA SYNDROME [None]
  - ANTIBIOTIC RESISTANT STAPHYLOCOCCUS TEST POSITIVE [None]
  - LOSS OF PROPRIOCEPTION [None]
  - MUSCULOSKELETAL DISCOMFORT [None]
  - PARAESTHESIA [None]
  - SPONDYLITIC MYELOPATHY [None]
  - SPINAL COLUMN STENOSIS [None]
  - SPINAL OSTEOARTHRITIS [None]
  - QUADRIPARESIS [None]
  - UROSEPSIS [None]
  - CHONDROCALCINOSIS PYROPHOSPHATE [None]
  - CHANGE OF BOWEL HABIT [None]
  - DERMATITIS [None]
  - LEFT VENTRICULAR HYPERTROPHY [None]
  - EXOSTOSIS [None]
  - INTERVERTEBRAL DISC PROTRUSION [None]
  - CARPAL TUNNEL SYNDROME [None]
  - RAPID EYE MOVEMENTS SLEEP ABNORMAL [None]
  - COGNITIVE DISORDER [None]
  - CARDIAC FAILURE CONGESTIVE [None]
  - HYPOTENSION [None]
  - NEUROGENIC BOWEL [None]
  - MALAISE [None]
  - BALANCE DISORDER [None]
  - ATAXIA [None]
  - RHEUMATOID ARTHRITIS [None]
  - ENTEROCOCCAL INFECTION [None]
  - CARDIAC VALVE DISEASE [None]
  - MUSCLE RUPTURE [None]
  - SPINAL CORD INJURY CERVICAL [None]
  - GYNAECOMASTIA [None]
  - CENTRAL NERVOUS SYSTEM LESION [None]
  - OSTEOARTHRITIS [None]
  - PROSTATIC SPECIFIC ANTIGEN INCREASED [None]
